FAERS Safety Report 9797060 (Version 1)
Quarter: 2014Q1

REPORT INFORMATION
  Report Type: Spontaneous
  Country: CL (occurrence: CL)
  Receive Date: 20140105
  Receipt Date: 20140105
  Transmission Date: 20141002
  Serious: Yes (Other)
  Sender: FDA-Public Use
  Company Number: CL-PFIZER INC-2013374561

PATIENT
  Age: 76 Year
  Sex: Female

DRUGS (3)
  1. XALATAN [Suspect]
     Indication: GLAUCOMA
     Dosage: 1 DF, 1X/DAY
     Route: 047
     Dates: start: 2003
  2. ATORVASTATIN CALCIUM [Concomitant]
     Dosage: 10 MG, 1X/DAY
     Dates: start: 2005
  3. ENALAPRIL [Concomitant]
     Dosage: 10 MG, 2X/DAY
     Dates: start: 2001

REACTIONS (4)
  - Cataract [Recovered/Resolved]
  - Intraocular lens implant [Recovered/Resolved]
  - Visual acuity reduced [Not Recovered/Not Resolved]
  - Gastrooesophageal reflux disease [Not Recovered/Not Resolved]
